FAERS Safety Report 5935771-6 (Version None)
Quarter: 2008Q4

REPORT INFORMATION
  Report Type: 
  Country: None (occurrence: None)
  Receive Date: 20081030
  Receipt Date: 20081024
  Transmission Date: 20090506
  Serious: Yes (Other)
  Sender: FDA-Public Use
  Company Number: US-AVENTIS-200814089US

PATIENT
  Sex: Male

DRUGS (12)
  1. CARAC [Suspect]
     Indication: ACTINIC KERATOSIS
     Dosage: DOSE: APPLY TO SCALP, FACT AND BILATERAL DORSAL HANDS EVERY EVENING X 4 WEEKS
     Route: 061
     Dates: start: 20080403, end: 20080501
  2. POTASSIUM CHLORIDE [Concomitant]
     Dosage: DOSE: UNK
  3. FERREX [Concomitant]
     Dosage: DOSE: UNK
  4. GEMFIBROZIL [Concomitant]
     Dosage: DOSE: UNK
  5. ORAL ANTIDIABETICS [Concomitant]
     Dosage: DOSE: UNK
  6. PROTONIX [Concomitant]
     Dosage: DOSE: UNK
  7. VERAPAMIL [Concomitant]
     Dosage: DOSE: UNK
  8. LESCOL XL [Concomitant]
     Dosage: DOSE: UNK
  9. MAGNESIUM SULFATE [Concomitant]
     Dosage: DOSE: UNK
  10. LISINOPRIL [Concomitant]
     Dosage: DOSE: UNK
  11. SODIUM BICARBONATE [Concomitant]
     Dosage: DOSE: UNK
  12. VITAMINS NOS [Concomitant]
     Dosage: DOSE: UNK

REACTIONS (8)
  - ARRHYTHMIA [None]
  - ASTHENIA [None]
  - DECREASED APPETITE [None]
  - DIARRHOEA [None]
  - LETHARGY [None]
  - MALAISE [None]
  - RENAL FAILURE [None]
  - WEIGHT DECREASED [None]
